FAERS Safety Report 5497145-4 (Version None)
Quarter: 2007Q4

REPORT INFORMATION
  Report Type: 
  Country: None (occurrence: None)
  Receive Date: 20071025
  Receipt Date: 20071016
  Transmission Date: 20080405
  Serious: Yes (Other)
  Sender: FDA-Public Use
  Company Number: FR-ROCHE-506201

PATIENT
  Age: 35 Year
  Sex: Female
  Weight: 65 kg

DRUGS (2)
  1. ROACCUTANE [Suspect]
     Indication: ACNE
     Route: 048
     Dates: start: 20070101, end: 20070225
  2. CONTRACEPTIVE [Concomitant]

REACTIONS (2)
  - NO ADVERSE REACTION [None]
  - PREGNANCY [None]
